FAERS Safety Report 9326095 (Version 1)
Quarter: 2013Q2

REPORT INFORMATION
  Report Type: Spontaneous
  Country: US (occurrence: None)
  Receive Date: 20130603
  Receipt Date: 20130603
  Transmission Date: 20140414
  Serious: No
  Sender: FDA-Public Use
  Company Number: None

PATIENT
  Age: 61 Year
  Sex: Male

DRUGS (6)
  1. GLEEVEC [Suspect]
     Indication: NEOPLASM MALIGNANT
     Dosage: 400 MG BID PO
     Route: 048
     Dates: start: 201212
  2. SIMVASTATIN [Concomitant]
  3. FLONASE [Concomitant]
  4. COD LIVER OIL [Concomitant]
  5. MULTIVITAMIN [Concomitant]
  6. ACETAMINOPHEN [Concomitant]

REACTIONS (1)
  - Muscle spasms [None]
